FAERS Safety Report 13495511 (Version 1)
Quarter: 2017Q2

REPORT INFORMATION
  Report Type: Report from Study
  Country: IN (occurrence: IN)
  Receive Date: 20170428
  Receipt Date: 20170428
  Transmission Date: 20170830
  Serious: Yes (Hospitalization)
  Sender: FDA-Public Use
  Company Number: IN-CIPLA (EU) LIMITED-E2B_00002293

PATIENT

DRUGS (2)
  1. CISPLATIN. [Suspect]
     Active Substance: CISPLATIN
     Indication: NON-SMALL CELL LUNG CANCER
     Dosage: 148 MG, OVER 60 MINUTES
     Route: 042
     Dates: start: 20120114
  2. ONCOGEM [Suspect]
     Active Substance: GEMCITABINE HYDROCHLORIDE
     Indication: NON-SMALL CELL LUNG CANCER
     Dosage: 1848 MG OVER 30 MINUTES
     Route: 042
     Dates: start: 20120114

REACTIONS (7)
  - Abdominal pain [None]
  - Hyponatraemia [None]
  - Hypophagia [None]
  - Haemoglobin decreased [None]
  - Nausea [Recovered/Resolved]
  - Pyrexia [Recovered/Resolved]
  - Hiccups [Recovered/Resolved]

NARRATIVE: CASE EVENT DATE: 20120115
